FAERS Safety Report 26114187 (Version 3)
Quarter: 2025Q4

REPORT INFORMATION
  Report Type: Spontaneous
  Country: US (occurrence: US)
  Receive Date: 20251202
  Receipt Date: 20251210
  Transmission Date: 20260117
  Serious: Yes (Life-Threatening, Hospitalization, Disabling, Other)
  Sender: PFIZER
  Company Number: US-PFIZER INC-PV202500139648

PATIENT
  Age: 33 Year
  Sex: Male

DRUGS (1)
  1. FENTANYL CITRATE [Suspect]
     Active Substance: FENTANYL CITRATE
     Dosage: UNK

REACTIONS (10)
  - Accidental overdose [Recovering/Resolving]
  - Rhabdomyolysis [Recovering/Resolving]
  - Acute respiratory failure [Recovering/Resolving]
  - Toxic leukoencephalopathy [Recovering/Resolving]
  - Locked-in syndrome [Recovering/Resolving]
  - Mental status changes [Recovering/Resolving]
  - Asthenia [Recovering/Resolving]
  - Fall [Recovering/Resolving]
  - Overdose [Unknown]
  - Paranoia [Recovering/Resolving]

NARRATIVE: CASE EVENT DATE: 20230405
